FAERS Safety Report 5957562-2 (Version None)
Quarter: 2008Q4

REPORT INFORMATION
  Report Type: 
  Country: None (occurrence: None)
  Receive Date: 20081117
  Receipt Date: 20081117
  Transmission Date: 20090506
  Serious: Yes (Other)
  Sender: FDA-Public Use
  Company Number: None

PATIENT
  Age: 82 Year
  Sex: Female
  Weight: 66.2252 kg

DRUGS (4)
  1. FELODIPINE [Suspect]
     Indication: HYPERTENSION
     Dosage: 2.5MG DAILY AM P.O.
     Route: 048
     Dates: start: 20081001
  2. METOPROLOL SUCCINATE EXTENDED RELEASE [Concomitant]
  3. AVALIDE [Concomitant]
  4. SIMVASTATIN [Concomitant]

REACTIONS (3)
  - ABDOMINAL DISCOMFORT [None]
  - DIZZINESS [None]
  - VOMITING [None]
